FAERS Safety Report 18449768 (Version 1)
Quarter: 2020Q4

REPORT INFORMATION
  Report Type: Spontaneous
  Country: JP (occurrence: JP)
  Receive Date: 20201102
  Receipt Date: 20201102
  Transmission Date: 20210114
  Serious: Yes (Death, Life-Threatening, Hospitalization, Other)
  Sender: FDA-Public Use
  Company Number: JP-LUPIN PHARMACEUTICALS INC.-2020-08001

PATIENT
  Age: 71 Year
  Sex: Male

DRUGS (10)
  1. PYRAZINAMIDE. [Suspect]
     Active Substance: PYRAZINAMIDE
     Indication: LYMPH NODE TUBERCULOSIS
     Dosage: 1.5 GRAM, 3/WEEEK
     Route: 065
  2. METHYLPREDNISOLONE. [Interacting]
     Active Substance: METHYLPREDNISOLONE
     Indication: STEROID THERAPY
     Dosage: 250 MILLIGRAM
     Route: 042
  3. METHYLPREDNISOLONE. [Interacting]
     Active Substance: METHYLPREDNISOLONE
     Indication: HENOCH-SCHONLEIN PURPURA
     Dosage: 500 MILLIGRAM
     Route: 042
  4. ETHAMBUTOL [Suspect]
     Active Substance: ETHAMBUTOL HYDROCHLORIDE
     Indication: LYMPH NODE TUBERCULOSIS
     Dosage: 1 GRAM, QD
     Route: 065
  5. ISONIAZID. [Suspect]
     Active Substance: ISONIAZID
     Indication: LYMPH NODE TUBERCULOSIS
     Dosage: 300 MILLIGRAM
     Route: 065
  6. ISONIAZID. [Suspect]
     Active Substance: ISONIAZID
     Dosage: 100 MILLIGRAM
     Route: 065
  7. PREDNISOLONE. [Interacting]
     Active Substance: PREDNISOLONE
     Indication: STEROID THERAPY
     Dosage: 40 MILLIGRAM
     Route: 042
  8. PREDNISOLONE. [Interacting]
     Active Substance: PREDNISOLONE
     Indication: HENOCH-SCHONLEIN PURPURA
     Dosage: 60 MILLIGRAM
     Route: 065
  9. RIFAMPIN. [Suspect]
     Active Substance: RIFAMPIN
     Indication: LYMPH NODE TUBERCULOSIS
     Dosage: 450 MILLIGRAM
     Route: 065
  10. METHYLPREDNISOLONE. [Interacting]
     Active Substance: METHYLPREDNISOLONE
     Dosage: RECEIVED METHYLPREDNISOLONE AGAIN AT LOWER DOSE
     Route: 042

REACTIONS (12)
  - Drug level decreased [Unknown]
  - Gastric mucosal lesion [Fatal]
  - Acute kidney injury [Unknown]
  - Gastrointestinal perforation [Unknown]
  - Hypovolaemic shock [Unknown]
  - Gastrointestinal haemorrhage [Fatal]
  - Condition aggravated [Fatal]
  - Drug interaction [Unknown]
  - Palpable purpura [Unknown]
  - Acute respiratory distress syndrome [Unknown]
  - Diarrhoea [Unknown]
  - Henoch-Schonlein purpura [Fatal]
